FAERS Safety Report 5046346-8 (Version None)
Quarter: 2006Q2

REPORT INFORMATION
  Report Type: 
  Country: None (occurrence: None)
  Receive Date: 20060629
  Receipt Date: 20060621
  Transmission Date: 20061013
  Serious: Yes (Hospitalization, Other)
  Sender: FDA-Public Use
  Company Number: A-US2006-12464

PATIENT
  Age: 59 Year
  Sex: Female

DRUGS (9)
  1. TRACLEER [Suspect]
     Indication: PULMONARY HYPERTENSION
     Dosage: 125 MG, BID, ORAL
     Route: 048
     Dates: start: 20020901, end: 20060330
  2. LOVASTATIN [Suspect]
  3. HUMALOG [Concomitant]
  4. POTASSIUM (POTASSIUM) [Concomitant]
  5. METOPROLOL (METOPROLOL) [Concomitant]
  6. WARFARIN SODIUM [Concomitant]
  7. ALDACTONE [Concomitant]
  8. FUROSEMIDE [Concomitant]
  9. OXYGEN (OXYGEN) [Concomitant]

REACTIONS (28)
  - ABDOMINAL DISTENSION [None]
  - ASCITES [None]
  - ASTHENIA [None]
  - BLOOD GLUCOSE INCREASED [None]
  - BRONCHITIS [None]
  - CHOLESTASIS [None]
  - COUGH [None]
  - DECREASED APPETITE [None]
  - DIASTOLIC DYSFUNCTION [None]
  - DILATATION ATRIAL [None]
  - DILATATION VENTRICULAR [None]
  - DRUG TOXICITY [None]
  - FATIGUE [None]
  - HAEMATOCRIT DECREASED [None]
  - HEPATIC FAILURE [None]
  - HEPATOCELLULAR DAMAGE [None]
  - HEPATOMEGALY [None]
  - IRON DEFICIENCY ANAEMIA [None]
  - LIPASE INCREASED [None]
  - LIVER FUNCTION TEST ABNORMAL [None]
  - NAUSEA [None]
  - OEDEMA PERIPHERAL [None]
  - PULMONARY HYPERTENSION [None]
  - RIGHT VENTRICULAR FAILURE [None]
  - TRICUSPID VALVE INCOMPETENCE [None]
  - UTERINE LEIOMYOMA [None]
  - VENTRICULAR HYPERTROPHY [None]
  - VOMITING [None]
